FAERS Safety Report 9051766 (Version 10)
Quarter: 2016Q4

REPORT INFORMATION
  Report Type: Spontaneous
  Country: US (occurrence: US)
  Receive Date: 20130207
  Receipt Date: 20161028
  Transmission Date: 20170207
  Serious: Yes (Other)
  Sender: FDA-Public Use
  Company Number: US-009507513-1302USA001553

PATIENT
  Sex: Female
  Weight: 78.5 kg

DRUGS (1)
  1. IMPLANON [Suspect]
     Active Substance: ETONOGESTREL
     Indication: CONTRACEPTION
     Dosage: 68 MG, UNK
     Route: 058
     Dates: start: 20110512, end: 20150612

REACTIONS (18)
  - Incorrect drug administration duration [Unknown]
  - Incision site pain [Unknown]
  - Arthralgia [Not Recovered/Not Resolved]
  - Migration of implanted drug [Unknown]
  - Surgery [Unknown]
  - Surgery [Recovered/Resolved]
  - Complication associated with device [Recovered/Resolved]
  - Difficulty removing drug implant [Recovered/Resolved]
  - Mood swings [Unknown]
  - Device difficult to use [Recovered/Resolved]
  - Headache [Unknown]
  - Scar [Not Recovered/Not Resolved]
  - Menstruation irregular [Unknown]
  - Metrorrhagia [Not Recovered/Not Resolved]
  - Haematoma [Unknown]
  - Muscle disorder [Unknown]
  - Emotional distress [Unknown]
  - Anxiety [Unknown]

NARRATIVE: CASE EVENT DATE: 20121206
